FAERS Safety Report 9849950 (Version 1)
Quarter: 2014Q1

REPORT INFORMATION
  Report Type: Spontaneous
  Country: US (occurrence: None)
  Receive Date: 20140127
  Receipt Date: 20140127
  Transmission Date: 20141002
  Serious: Yes (Death)
  Sender: FDA-Public Use
  Company Number: None

PATIENT
  Age: 54 Year
  Sex: Male
  Weight: 58.97 kg

DRUGS (1)
  1. ENBREL [Suspect]
     Indication: PSORIASIS
     Dosage: ONCE DAILY GIVEN INTO/UNDER THE SKIN
     Route: 058
     Dates: start: 20090131, end: 20131213

REACTIONS (3)
  - Jaundice [None]
  - Hepatic failure [None]
  - Renal failure [None]
